FAERS Safety Report 11803974 (Version 8)
Quarter: 2018Q3

REPORT INFORMATION
  Report Type: Spontaneous
  Country: US (occurrence: US)
  Receive Date: 20151204
  Receipt Date: 20180921
  Transmission Date: 20181010
  Serious: No
  Sender: FDA-Public Use
  Company Number: US-ASTRAZENECA-2015SF11670

PATIENT
  Age: 25741 Day
  Sex: Male
  Weight: 95.3 kg

DRUGS (7)
  1. BYDUREON [Suspect]
     Active Substance: EXENATIDE
     Indication: TYPE 2 DIABETES MELLITUS
     Route: 058
  2. INSULIN [Concomitant]
     Active Substance: INSULIN NOS
     Route: 058
  3. NPH INSULIN [Concomitant]
     Active Substance: INSULIN BEEF
     Dosage: 7 UNITS TWO TIMES A DAY
  4. HUMALOG [Concomitant]
     Active Substance: INSULIN LISPRO
     Route: 058
  5. BYETTA [Suspect]
     Active Substance: EXENATIDE
     Indication: TYPE 2 DIABETES MELLITUS
     Route: 065
  6. METFORMIN [Concomitant]
     Active Substance: METFORMIN HYDROCHLORIDE
  7. WARFARIN [Concomitant]
     Active Substance: WARFARIN

REACTIONS (17)
  - Blood glucose increased [Not Recovered/Not Resolved]
  - Feeling abnormal [Recovered/Resolved]
  - Weight decreased [Unknown]
  - Device use issue [Unknown]
  - Dysgeusia [Unknown]
  - Malaise [Unknown]
  - Wrong dose [Unknown]
  - Nausea [Unknown]
  - Underdose [Unknown]
  - Vomiting [Unknown]
  - Hypoglycaemia [Unknown]
  - Dizziness [Recovered/Resolved]
  - Weight increased [Unknown]
  - Injection site haemorrhage [Recovered/Resolved]
  - Diabetes mellitus inadequate control [Unknown]
  - Product quality issue [Unknown]
  - Hot flush [Recovered/Resolved]

NARRATIVE: CASE EVENT DATE: 20180121
